FAERS Safety Report 8611232-0 (Version None)
Quarter: 2012Q3

REPORT INFORMATION
  Report Type: 
  Country: None (occurrence: None)
  Receive Date: 20120822
  Receipt Date: 20070226
  Transmission Date: 20120928
  Serious: Yes (Death, Life-Threatening)
  Sender: FDA-Public Use
  Company Number: CO-PFIZER INC-2006127901

PATIENT
  Age: 72 Year
  Sex: Female

DRUGS (5)
  1. INSULIN ZINC SUSPENSION [Concomitant]
     Dosage: 30 IU, 1X/DAY
  2. LIPITOR [Suspect]
     Indication: LIPIDS INCREASED
     Dosage: 10 MG, 1X/DAY
     Route: 048
     Dates: start: 20040123, end: 20060927
  3. ACETYLSALICYLIC ACID [Concomitant]
     Dosage: 100 MG, 1X/DAY
  4. CEFRADINE [Concomitant]
     Dosage: 500 MG, 1X/DAY
  5. QUINAPRIL AND HYDROCHLOROTHIAZIDE [Suspect]
     Indication: HYPERTENSION
     Dosage: [QUINAPRIL HCL 20 MG/ HYDROCHLOROTHIAZIDE 12.5 MG], 1X/DAY
     Route: 048
     Dates: start: 20040123, end: 20060927

REACTIONS (3)
  - ANAEMIA [None]
  - OEDEMA [None]
  - CARDIO-RESPIRATORY ARREST [None]
